FAERS Safety Report 5202393-4 (Version None)
Quarter: 2006Q4

REPORT INFORMATION
  Report Type: 
  Country: None (occurrence: None)
  Receive Date: 20061012
  Receipt Date: 20060726
  Transmission Date: 20070319
  Serious: No
  Sender: FDA-Public Use
  Company Number: 2006S1000143

PATIENT
  Age: 64 Year
  Sex: Female

DRUGS (7)
  1. CUBICIN [Suspect]
     Dosage: 300 MG;Q24H;IV
     Route: 042
     Dates: start: 20060712, end: 20060721
  2. CYCLOBENZAPRINE HCL [Concomitant]
  3. POTASSIUM ACETATE [Concomitant]
  4. VICODIN [Concomitant]
  5. CETIRIZINE HCL [Concomitant]
  6. AMLODIPINE [Concomitant]
  7. ESCITALOPRAM OXALATE [Concomitant]

REACTIONS (3)
  - ALANINE AMINOTRANSFERASE INCREASED [None]
  - ASPARTATE AMINOTRANSFERASE INCREASED [None]
  - BLOOD CREATINE PHOSPHOKINASE INCREASED [None]
